FAERS Safety Report 6092811-4 (Version None)
Quarter: 2009Q1

REPORT INFORMATION
  Report Type: 
  Country: None (occurrence: None)
  Receive Date: 20090225
  Receipt Date: 20090212
  Transmission Date: 20090719
  Serious: Yes (Death, Hospitalization, Other)
  Sender: FDA-Public Use
  Company Number: CZ-ROCHE-611509

PATIENT
  Sex: Female

DRUGS (7)
  1. PEGASYS [Suspect]
     Route: 058
     Dates: start: 20081029, end: 20090116
  2. COPEGUS [Suspect]
     Dosage: DOSE FREQUENCY REPORTED: 5 X DAY
     Route: 048
     Dates: start: 20081029, end: 20090116
  3. SIMEPAR [Concomitant]
     Indication: CHRONIC HEPATITIS
     Dosage: FREQUENCY REPORTED AS: 3 X 2
     Route: 048
     Dates: end: 20090116
  4. VEROSPIRON [Concomitant]
     Dosage: FREQUENCY REPORTED AS : 2 X 1
     Route: 048
     Dates: end: 20090116
  5. SORBIFER DURULES [Concomitant]
     Dosage: FREQUENCY REPORTED AS: 1-0-0
     Dates: end: 20090116
  6. ORTANOL [Concomitant]
     Indication: REFLUX OESOPHAGITIS
     Dosage: FREQUENCY REPORTED AS:1-0-0
     Route: 048
     Dates: end: 20090116
  7. LETROX [Concomitant]
     Dosage: DRUG NAME REPORTED AS : LETHROX,  FREQUENCY:1/2-0-0
     Dates: end: 20090116

REACTIONS (6)
  - DIARRHOEA [None]
  - DISSEMINATED INTRAVASCULAR COAGULATION [None]
  - MULTI-ORGAN FAILURE [None]
  - PYREXIA [None]
  - URINARY TRACT INFECTION [None]
  - UROSEPSIS [None]
